FAERS Safety Report 10761974 (Version 1)
Quarter: 2015Q1

REPORT INFORMATION
  Report Type: Report from Study
  Country: US (occurrence: US)
  Receive Date: 20150204
  Receipt Date: 20150204
  Transmission Date: 20150721
  Serious: Yes (Other)
  Sender: FDA-Public Use
  Company Number: US-SA-2015SA013031

PATIENT
  Sex: Male

DRUGS (3)
  1. ORTERONEL [Suspect]
     Active Substance: ORTERONEL
     Indication: PROSTATE CANCER METASTATIC
     Dosage: FROM DAY 15 OF CYCLE 1 ONWARDS
     Route: 048
  2. DOCETAXEL. [Suspect]
     Active Substance: DOCETAXEL
     Indication: PROSTATE CANCER METASTATIC
     Dosage: ON DAY 1 OF 3 WEEK CYCLE
     Route: 042
  3. PREDNISONE. [Suspect]
     Active Substance: PREDNISONE
     Indication: PROSTATE CANCER METASTATIC
     Dosage: ADMINISTERED ON DAYS 1-21?CYCLE DURATION 21 DAYS
     Route: 048

REACTIONS (1)
  - Pancreatitis [Unknown]
